FAERS Safety Report 11078247 (Version 1)
Quarter: 2015Q2

REPORT INFORMATION
  Report Type: Spontaneous
  Country: US (occurrence: US)
  Receive Date: 20150430
  Receipt Date: 20150430
  Transmission Date: 20150821
  Serious: No
  Sender: FDA-Public Use
  Company Number: US-AMGEN-USASP2015040784

PATIENT
  Age: 38 Year
  Sex: Female

DRUGS (1)
  1. ENBREL [Suspect]
     Active Substance: ETANERCEPT
     Indication: PSORIATIC ARTHROPATHY
     Dosage: 50 MG TO 100 MG QWK
     Route: 065
     Dates: start: 20130601

REACTIONS (5)
  - Rash [Not Recovered/Not Resolved]
  - Injection site urticaria [Recovered/Resolved]
  - Fungal infection [Not Recovered/Not Resolved]
  - Injection site pruritus [Recovered/Resolved]
  - Sinusitis [Recovered/Resolved]

NARRATIVE: CASE EVENT DATE: 201306
